FAERS Safety Report 13026222 (Version 1)
Quarter: 2016Q4

REPORT INFORMATION
  Report Type: Spontaneous
  Country: US (occurrence: US)
  Receive Date: 20161214
  Receipt Date: 20161214
  Transmission Date: 20170207
  Serious: Yes (Hospitalization)
  Sender: FDA-Public Use
  Company Number: None

PATIENT
  Age: 67 Year
  Sex: Male
  Weight: 69 kg

DRUGS (2)
  1. LEUPROLIDE ACETATE. [Suspect]
     Active Substance: LEUPROLIDE ACETATE
     Dates: end: 20140318
  2. BICALUTAMIDE. [Suspect]
     Active Substance: BICALUTAMIDE
     Dates: end: 20140914

REACTIONS (1)
  - Radiation proctitis [None]

NARRATIVE: CASE EVENT DATE: 20160211
